FAERS Safety Report 9241990 (Version 1)
Quarter: 2013Q2

REPORT INFORMATION
  Report Type: Spontaneous
  Country: CA (occurrence: CA)
  Receive Date: 20130419
  Receipt Date: 20130419
  Transmission Date: 20140414
  Serious: Yes (Hospitalization, Other)
  Sender: FDA-Public Use
  Company Number: CA-TEVA-399442USA

PATIENT
  Age: 61 Year
  Sex: Female
  Weight: 50 kg

DRUGS (3)
  1. AMLODIPINE [Suspect]
     Dosage: 1 DOSAGE FORMS DAILY;
     Route: 048
  2. COVERSYL [Suspect]
     Dosage: 1 DOSAGE FORMS DAILY;
     Route: 048
  3. ETHANOL [Concomitant]

REACTIONS (8)
  - Confusional state [Recovered/Resolved]
  - Hypokalaemia [Recovered/Resolved]
  - Hyponatraemia [Recovered/Resolved]
  - Hypophagia [Recovered/Resolved]
  - Metabolic acidosis [Recovered/Resolved]
  - Unresponsive to stimuli [Recovered/Resolved]
  - Somnolence [Recovered/Resolved]
  - Vomiting [Recovered/Resolved]
